FAERS Safety Report 26071155 (Version 2)
Quarter: 2025Q4

REPORT INFORMATION
  Report Type: Report from Study
  Country: US (occurrence: US)
  Receive Date: 20251120
  Receipt Date: 20251207
  Transmission Date: 20260118
  Serious: Yes (Hospitalization, Other)
  Sender: ABBVIE
  Company Number: US-ABBVIE-6553998

PATIENT
  Age: 51 Year
  Sex: Male

DRUGS (1)
  1. SKYRIZI [Suspect]
     Active Substance: RISANKIZUMAB-RZAA
     Indication: Psoriasis
     Route: 058
     Dates: start: 202507

REACTIONS (3)
  - Spinal operation [Not Recovered/Not Resolved]
  - Pyrexia [Unknown]
  - Haematological infection [Recovering/Resolving]

NARRATIVE: CASE EVENT DATE: 20251106
